FAERS Safety Report 5609024-X (Version None)
Quarter: 2008Q1

REPORT INFORMATION
  Report Type: 
  Country: None (occurrence: None)
  Receive Date: 20080131
  Receipt Date: 20080125
  Transmission Date: 20080703
  Serious: Yes (Life-Threatening, Other)
  Sender: FDA-Public Use
  Company Number: AU-AVENTIS-200810954GDDC

PATIENT
  Age: 65 Year
  Sex: Female

DRUGS (2)
  1. LANTUS [Suspect]
     Route: 058
     Dates: start: 20061201
  2. AUTOPEN INSULIN INJECTION PEN [Suspect]

REACTIONS (2)
  - BLOOD GLUCOSE INCREASED [None]
  - ENDOMETRIAL CANCER [None]
